FAERS Safety Report 11488623 (Version 1)
Quarter: 2015Q3

REPORT INFORMATION
  Report Type: Spontaneous
  Country: US (occurrence: US)
  Receive Date: 20150910
  Receipt Date: 20150910
  Transmission Date: 20151125
  Serious: No
  Sender: FDA-Public Use
  Company Number: US-ROCHE-1525091

PATIENT
  Age: 66 Year
  Sex: Female

DRUGS (4)
  1. RIBASPHERE [Suspect]
     Active Substance: RIBAVIRIN
     Indication: HEPATITIS C
     Dosage: 3 TABLETS IN MORNING AND 3 IN EVENING
     Route: 048
     Dates: start: 20140515
  2. SOVALDI [Suspect]
     Active Substance: SOFOSBUVIR
     Indication: HEPATITIS C
     Route: 048
     Dates: start: 20140515, end: 20140806
  3. PEGASYS [Suspect]
     Active Substance: PEGINTERFERON ALFA-2A
     Indication: HEPATITIS C
     Dosage: 12 SHOTS
     Route: 058
     Dates: start: 20140514, end: 20140806
  4. RIBASPHERE [Suspect]
     Active Substance: RIBAVIRIN
     Dosage: DOSE REDUCED TO HALF
     Route: 048
     Dates: end: 20140806

REACTIONS (4)
  - Anaemia [Recovered/Resolved]
  - Hair texture abnormal [Not Recovered/Not Resolved]
  - Red blood cell count decreased [Recovered/Resolved]
  - Alopecia [Not Recovered/Not Resolved]

NARRATIVE: CASE EVENT DATE: 20140728
